FAERS Safety Report 8458446-0 (Version None)
Quarter: 2012Q2

REPORT INFORMATION
  Report Type: 
  Country: None (occurrence: None)
  Receive Date: 20120622
  Receipt Date: 20120613
  Transmission Date: 20120825
  Serious: Yes (Death, Other)
  Sender: FDA-Public Use
  Company Number: DE-BRISTOL-MYERS SQUIBB COMPANY-16685984

PATIENT
  Age: 67 Year
  Sex: Male
  Weight: 108 kg

DRUGS (11)
  1. BISOPROLOL [Concomitant]
     Indication: HYPERTENSION
     Dosage: 1/2-0-0 1 DF:BISOPROLOL 10UNITS NOS
     Route: 048
  2. FUROSEMIDE [Concomitant]
     Indication: HYPERTENSION
     Dosage: 1 DF:FUROSEMIDE 40  1-1-0
     Route: 048
  3. BYETTA [Concomitant]
     Dosage: BYETTA (SYNTHETIC EXENATIDE, 1-0-1)
  4. AMOXICILLIN AND CLAVULANATE POTASSIUM [Concomitant]
     Indication: PNEUMONIA
     Dosage: AMOCLAV 875 MG + 125 MG (AMOXICILLIN/CLAVULANIC ACID, 1-0-1)
  5. AMLODIPINE [Concomitant]
     Dosage: AMLODIPIN 10 (1-0-0) UNITS NOS
  6. RAMIPRIL [Concomitant]
     Indication: HYPERTENSION
     Dosage: RAMIPRIL 10 (1-0-0) UNITS NOS
     Route: 048
  7. METFORMIN HCL [Concomitant]
     Dosage: METFORMIN 850 (1-0-1) UNITS NOS
  8. FENOFIBRATE [Concomitant]
     Dosage: FENOFIBRATE 250 (0-0-1) UNITS NOS
  9. FUROSEMIDE [Concomitant]
     Indication: PLEURAL EFFUSION
     Dosage: 1 DF:FUROSEMIDE 40  1-1-0
     Route: 048
  10. SPRYCEL [Suspect]
     Indication: CHRONIC MYELOID LEUKAEMIA
     Dosage: DASATINIB WAS INTERRUPTED FROM 16-APR-12 TO 17-APR-12
     Route: 048
     Dates: start: 20120326
  11. ALLOPURINOL [Concomitant]
     Dosage: ALLOPURINOL 300 HEUMANN TABLETS (0-0-1) UNITS NOS

REACTIONS (4)
  - DEATH [None]
  - PLEURAL EFFUSION [None]
  - PNEUMONIA [None]
  - GENERAL PHYSICAL HEALTH DETERIORATION [None]
